FAERS Safety Report 10872815 (Version 1)
Quarter: 2015Q1

REPORT INFORMATION
  Report Type: Spontaneous
  Country: DE (occurrence: DE)
  Receive Date: 20150227
  Receipt Date: 20150227
  Transmission Date: 20150721
  Serious: Yes (Other)
  Sender: FDA-Public Use
  Company Number: DE-ROCHE-1533781

PATIENT
  Age: 74 Year
  Sex: Female
  Weight: 58 kg

DRUGS (1)
  1. AVASTIN [Suspect]
     Active Substance: BEVACIZUMAB
     Indication: OVARIAN CANCER METASTATIC
     Route: 065
     Dates: start: 201409

REACTIONS (3)
  - Hyperbilirubinaemia [Not Recovered/Not Resolved]
  - Cholestasis [Not Recovered/Not Resolved]
  - Lymphangiosis carcinomatosa [Not Recovered/Not Resolved]

NARRATIVE: CASE EVENT DATE: 201412
